FAERS Safety Report 19072187 (Version 1)
Quarter: 2021Q1

REPORT INFORMATION
  Report Type: Spontaneous
  Country: US (occurrence: US)
  Receive Date: 20210326
  Receipt Date: 20210326
  Transmission Date: 20210420
  Serious: No
  Sender: FDA-Public Use
  Company Number: None

PATIENT
  Age: 61 Year
  Sex: Female

DRUGS (1)
  1. IOPAMIDOL (IOPAMIDOL 261MG/ML INJ) [Suspect]
     Active Substance: IOPAMIDOL
     Dates: start: 20210220

REACTIONS (5)
  - Pharyngeal swelling [None]
  - Extravasation [None]
  - Flushing [None]
  - Dyspnoea [None]
  - Hyperhidrosis [None]

NARRATIVE: CASE EVENT DATE: 20210220
